FAERS Safety Report 18618699 (Version 1)
Quarter: 2020Q4

REPORT INFORMATION
  Report Type: Spontaneous
  Country: AU (occurrence: AU)
  Receive Date: 20201215
  Receipt Date: 20201215
  Transmission Date: 20210114
  Serious: Yes (Other)
  Sender: FDA-Public Use
  Company Number: AU-MYLANLABS-2020M1101763

PATIENT
  Sex: Female

DRUGS (3)
  1. CYTARABINE. [Suspect]
     Active Substance: CYTARABINE
     Indication: T-CELL TYPE ACUTE LEUKAEMIA
     Dosage: FLAG REGIMEN
     Route: 065
  2. FILGRASTIM [Suspect]
     Active Substance: FILGRASTIM
     Indication: T-CELL TYPE ACUTE LEUKAEMIA
     Dosage: FLAG REGIMEN
     Route: 065
  3. FLUDARABINE [Suspect]
     Active Substance: FLUDARABINE PHOSPHATE
     Indication: T-CELL TYPE ACUTE LEUKAEMIA
     Dosage: FLAG REGIMEN
     Route: 065

REACTIONS (3)
  - Febrile neutropenia [Not Recovered/Not Resolved]
  - Treatment failure [Unknown]
  - Urinary tract infection [Unknown]
